FAERS Safety Report 4562351-X (Version None)
Quarter: 2005Q1

REPORT INFORMATION
  Report Type: 
  Country: None (occurrence: None)
  Receive Date: 20050127
  Receipt Date: 20041111
  Transmission Date: 20050727
  Serious: Yes (Other)
  Sender: FDA-Public Use
  Company Number: US-BRISTOL-MYERS SQUIBB COMPANY-12763439

PATIENT
  Age: 53 Year
  Sex: Male

DRUGS (7)
  1. PARAPLATIN AQ [Suspect]
     Indication: LUNG NEOPLASM MALIGNANT
     Dosage: THERAPY START 30-JUL-2004
     Route: 042
     Dates: start: 20040827, end: 20040827
  2. TAXOL [Concomitant]
     Indication: LUNG NEOPLASM MALIGNANT
     Dosage: THERAPY ADMINISTERED 30-JUL, 06-AUG, 12-AUG, AND 27-AUG-2004
     Dates: start: 20040827, end: 20040827
  3. ANZEMET [Concomitant]
  4. DECADRON [Concomitant]
  5. TAGAMET [Concomitant]
  6. BENADRYL [Concomitant]
  7. RADIATION THERAPY [Concomitant]

REACTIONS (3)
  - BLOOD PRESSURE DECREASED [None]
  - DYSPNOEA [None]
  - OXYGEN SATURATION DECREASED [None]
